FAERS Safety Report 8079089-7 (Version None)
Quarter: 2012Q1

REPORT INFORMATION
  Report Type: 
  Country: None (occurrence: None)
  Receive Date: 20120128
  Receipt Date: 20110818
  Transmission Date: 20120608
  Serious: No
  Sender: FDA-Public Use
  Company Number: US-ABBOTT-11P-163-0847710-00

PATIENT
  Sex: Female
  Weight: 35.412 kg

DRUGS (2)
  1. HUMIRA [Suspect]
     Indication: CROHN'S DISEASE
     Dosage: 1 IN 2 WEEKS: PARTICIPATED IN CLINICAL TRIAL
     Route: 058
     Dates: start: 20060101, end: 20070401
  2. HUMIRA [Suspect]
     Route: 058
     Dates: start: 20070901, end: 20090101

REACTIONS (1)
  - PNEUMONIA [None]
